FAERS Safety Report 18505126 (Version 1)
Quarter: 2020Q4

REPORT INFORMATION
  Report Type: Spontaneous
  Country: US (occurrence: US)
  Receive Date: 20201116
  Receipt Date: 20201116
  Transmission Date: 20210114
  Serious: Yes (Hospitalization, Other)
  Sender: FDA-Public Use
  Company Number: US-009507513-2011USA008582

PATIENT
  Age: 45 Year
  Sex: Female
  Weight: 81.6 kg

DRUGS (19)
  1. CLOPIDOGREL [Concomitant]
     Active Substance: CLOPIDOGREL BISULFATE
     Indication: ANTICOAGULANT THERAPY
     Dosage: 75 MILLIGRAM, QD
     Dates: start: 201509
  2. ATORVASTATIN [Concomitant]
     Active Substance: ATORVASTATIN
     Dosage: 20 MILLIGRAM, QD
  3. ACTOS [Concomitant]
     Active Substance: PIOGLITAZONE HYDROCHLORIDE
     Indication: TYPE 2 DIABETES MELLITUS
     Dosage: UNK
     Dates: start: 201603, end: 201609
  4. BYETTA [Suspect]
     Active Substance: EXENATIDE
     Dosage: 20 MICROGRAM, QD
     Route: 058
     Dates: start: 201608
  5. BYETTA [Suspect]
     Active Substance: EXENATIDE
     Indication: TYPE 2 DIABETES MELLITUS
     Dosage: 10 MICROGRAM, QD
     Route: 058
     Dates: start: 200705, end: 200706
  6. BYETTA [Suspect]
     Active Substance: EXENATIDE
     Dosage: 20 MICROGRAM, QD
     Route: 058
     Dates: start: 20090504
  7. TRAZODONE HYDROCHLORIDE. [Concomitant]
     Active Substance: TRAZODONE HYDROCHLORIDE
     Indication: SLEEP DISORDER
     Dosage: 50 MILLIGRAM, QD
  8. VITRON-C [Concomitant]
     Active Substance: ASCORBIC ACID\IRON
     Indication: SUPPLEMENTATION THERAPY
     Dosage: 130 MILLIGRAM, QD
     Dates: start: 201608
  9. PYRIDOXINE [Concomitant]
     Active Substance: PYRIDOXINE
     Indication: COAGULOPATHY
     Dosage: 50 MILLIGRAM, QD
     Dates: start: 201610
  10. BYETTA [Suspect]
     Active Substance: EXENATIDE
     Dosage: 10 MICROGRAM, QD
     Route: 058
     Dates: start: 200706
  11. ASPIRIN. [Concomitant]
     Active Substance: ASPIRIN
     Dosage: 162 MILLIGRAM, QD
  12. PROBIOTICS (UNSPECIFIED) [Concomitant]
     Active Substance: PROBIOTICS NOS
     Indication: PROPHYLAXIS
     Dosage: TWO TIMES A DAY
     Dates: start: 201604
  13. METFORMIN [Concomitant]
     Active Substance: METFORMIN HYDROCHLORIDE
     Indication: TYPE 2 DIABETES MELLITUS
     Dosage: 1500 MILLIGRAM, QD
  14. METFORMIN [Concomitant]
     Active Substance: METFORMIN HYDROCHLORIDE
     Indication: TYPE 2 DIABETES MELLITUS
     Dosage: 1000 MILLIGRAM, QD
  15. FOLIC ACID. [Concomitant]
     Active Substance: FOLIC ACID
     Indication: COAGULOPATHY
     Dosage: UNK
     Dates: start: 201610
  16. PRINIVIL [Suspect]
     Active Substance: LISINOPRIL
     Indication: PROPHYLAXIS
     Dosage: 5 MILLIGRAM, QD
     Route: 048
  17. BYETTA [Suspect]
     Active Substance: EXENATIDE
     Dosage: 20 MICROGRAM, QD
     Route: 058
     Dates: start: 200706, end: 200706
  18. SERTRALINE HYDROCHLORIDE. [Concomitant]
     Active Substance: SERTRALINE HYDROCHLORIDE
     Indication: DEPRESSION
     Dosage: 150 MILLIGRAM, QD
  19. CHOLECALCIFEROL [Concomitant]
     Active Substance: CHOLECALCIFEROL
     Indication: SUPPLEMENTATION THERAPY
     Dosage: 4000 INTERNATIONAL UNIT, QD

REACTIONS (13)
  - Hunger [Not Recovered/Not Resolved]
  - Product dose omission issue [Unknown]
  - Vascular occlusion [Unknown]
  - Clostridium difficile infection [Unknown]
  - Weight decreased [Recovered/Resolved]
  - Abdominal abscess [Recovered/Resolved]
  - Weight increased [Unknown]
  - Memory impairment [Unknown]
  - Depression [Unknown]
  - Coagulopathy [Unknown]
  - Decreased appetite [Recovered/Resolved]
  - Blood glucose increased [Not Recovered/Not Resolved]
  - Vomiting [Recovered/Resolved]

NARRATIVE: CASE EVENT DATE: 2007
